FAERS Safety Report 15925456 (Version 2)
Quarter: 2019Q1

REPORT INFORMATION
  Report Type: Spontaneous
  Country: US (occurrence: US)
  Receive Date: 20190205
  Receipt Date: 20190219
  Transmission Date: 20190417
  Serious: No
  Sender: FDA-Public Use
  Company Number: US-ALLERGAN-1834459US

PATIENT
  Age: 34 Year
  Sex: Female

DRUGS (1)
  1. BOTOX [Suspect]
     Active Substance: ONABOTULINUMTOXINA
     Indication: HYPERHIDROSIS
     Dosage: UNK UNK, SINGLE
     Route: 023
     Dates: start: 201806, end: 201806

REACTIONS (5)
  - Injection site pain [Unknown]
  - Product administered at inappropriate site [Unknown]
  - Fibroma [Not Recovered/Not Resolved]
  - Paraesthesia [Unknown]
  - Muscular weakness [Not Recovered/Not Resolved]
